FAERS Safety Report 22312340 (Version 1)
Quarter: 2023Q2

REPORT INFORMATION
  Report Type: Spontaneous
  Country: US (occurrence: US)
  Receive Date: 20230512
  Receipt Date: 20230512
  Transmission Date: 20230721
  Serious: No
  Sender: FDA-Public Use
  Company Number: US-ZENPEP LLC-2023AIMT00424

PATIENT

DRUGS (3)
  1. ZENPEP [Suspect]
     Active Substance: PANCRELIPASE AMYLASE\PANCRELIPASE LIPASE\PANCRELIPASE PROTEASE
     Indication: Pancreatic failure
     Dosage: 40 000 USP UNITS, 6X/DAY (2 CAPSULES WITH EACH MEAL)
     Route: 048
     Dates: start: 202301
  2. ZENPEP [Suspect]
     Active Substance: PANCRELIPASE AMYLASE\PANCRELIPASE LIPASE\PANCRELIPASE PROTEASE
     Dosage: 40 000 USP UNITS, ONCE, LAST DOSE PRIOR EVENTS
     Route: 048
  3. XARELTO [Concomitant]
     Active Substance: RIVAROXABAN
     Indication: Cardiac disorder
     Dosage: 20 MG, 1X/DAY

REACTIONS (4)
  - Anorectal swelling [Not Recovered/Not Resolved]
  - Dyschezia [Not Recovered/Not Resolved]
  - Abdominal pain upper [Unknown]
  - Lip swelling [Not Recovered/Not Resolved]

NARRATIVE: CASE EVENT DATE: 20230401
